FAERS Safety Report 7216930-1 (Version None)
Quarter: 2011Q1

REPORT INFORMATION
  Report Type: 
  Country: None (occurrence: None)
  Receive Date: 20110110
  Receipt Date: 20101230
  Transmission Date: 20110831
  Serious: Yes (Other)
  Sender: FDA-Public Use
  Company Number: DK-BAYER-2010-008709

PATIENT
  Sex: Female

DRUGS (1)
  1. MIRENA [Suspect]
     Indication: CONTRACEPTION
     Dosage: 20 A?G, CONT
     Dates: start: 20100519, end: 20101201

REACTIONS (4)
  - HYPERTRICHOSIS [None]
  - BREAST DISCOMFORT [None]
  - BREAST CANCER FEMALE [None]
  - FATIGUE [None]
